FAERS Safety Report 11214383 (Version 2)
Quarter: 2015Q4

REPORT INFORMATION
  Report Type: Report from Study
  Country: JP (occurrence: JP)
  Receive Date: 20150624
  Receipt Date: 20151123
  Transmission Date: 20160304
  Serious: Yes (Death, Hospitalization)
  Sender: FDA-Public Use
  Company Number: JP-ROCHE-1569684

PATIENT
  Age: 40 Year
  Sex: Female
  Weight: 44 kg

DRUGS (9)
  1. DECADRON [Concomitant]
     Active Substance: DEXAMETHASONE
     Indication: PROPHYLAXIS
     Route: 041
     Dates: start: 20140422, end: 20140830
  2. ZANTAC [Concomitant]
     Active Substance: RANITIDINE HYDROCHLORIDE
     Indication: PROPHYLAXIS
     Route: 041
     Dates: start: 20140422, end: 20140830
  3. BEVACIZUMAB [Suspect]
     Active Substance: BEVACIZUMAB
     Indication: OVARIAN CANCER
     Route: 041
     Dates: start: 20140507, end: 2014
  4. PARAPLATIN [Suspect]
     Active Substance: CARBOPLATIN
     Dosage: THE FOURTH COURSE
     Route: 041
     Dates: end: 20140816
  5. BEVACIZUMAB [Suspect]
     Active Substance: BEVACIZUMAB
     Route: 041
     Dates: start: 20140725, end: 20140816
  6. TAXOL [Suspect]
     Active Substance: PACLITAXEL
     Dosage: THE FOURTH COURSE
     Route: 041
     Dates: end: 20140830
  7. TAXOL [Suspect]
     Active Substance: PACLITAXEL
     Indication: OVARIAN CANCER
     Dosage: THREE COURSES
     Route: 041
     Dates: start: 20140422, end: 2014
  8. PARAPLATIN [Suspect]
     Active Substance: CARBOPLATIN
     Indication: OVARIAN CANCER
     Dosage: THREE COURSES
     Route: 041
     Dates: start: 20140422, end: 2014
  9. ALOXI [Concomitant]
     Active Substance: PALONOSETRON HYDROCHLORIDE
     Indication: PROPHYLAXIS
     Route: 041
     Dates: start: 20140422, end: 20140830

REACTIONS (2)
  - Deep vein thrombosis [Not Recovered/Not Resolved]
  - Ovarian cancer [Fatal]

NARRATIVE: CASE EVENT DATE: 20140707
